FAERS Safety Report 6121313-1 (Version None)
Quarter: 2009Q1

REPORT INFORMATION
  Report Type: 
  Country: None (occurrence: None)
  Receive Date: 20090317
  Receipt Date: 20090309
  Transmission Date: 20090719
  Serious: Yes (Other)
  Sender: FDA-Public Use
  Company Number: US-BAYER-200915008NA

PATIENT
  Sex: Male

DRUGS (2)
  1. BETASERON [Suspect]
     Indication: DRUG USE FOR UNKNOWN INDICATION
     Route: 058
  2. REBIF [Concomitant]

REACTIONS (1)
  - PROSTATE CANCER [None]
